FAERS Safety Report 24936449 (Version 2)
Quarter: 2025Q1

REPORT INFORMATION
  Report Type: Spontaneous
  Country: US (occurrence: US)
  Receive Date: 20250206
  Receipt Date: 20250211
  Transmission Date: 20250409
  Serious: No
  Sender: ELI LILLY AND COMPANY
  Company Number: US-ELI_LILLY_AND_COMPANY-US202502002426

PATIENT
  Age: 51 Year
  Sex: Female

DRUGS (1)
  1. ZEPBOUND [Suspect]
     Active Substance: TIRZEPATIDE
     Indication: Weight control
     Route: 058
     Dates: start: 20250122

REACTIONS (5)
  - Vertigo [Unknown]
  - Mobility decreased [Unknown]
  - Hypoglycaemia [Recovered/Resolved]
  - Dizziness [Unknown]
  - Nausea [Recovered/Resolved]
